FAERS Safety Report 6093939-5 (Version None)
Quarter: 2009Q1

REPORT INFORMATION
  Report Type: 
  Country: None (occurrence: None)
  Receive Date: 20090226
  Receipt Date: 20090220
  Transmission Date: 20090719
  Serious: Yes (Hospitalization)
  Sender: FDA-Public Use
  Company Number: A0770272A

PATIENT
  Age: 59 Year
  Sex: Female
  Weight: 130.9 kg

DRUGS (1)
  1. AVANDARYL [Suspect]
     Route: 048
     Dates: start: 20070126, end: 20070604

REACTIONS (2)
  - MYOCARDIAL INFARCTION [None]
  - OEDEMA PERIPHERAL [None]
